FAERS Safety Report 8906265 (Version 1)
Quarter: 2012Q4

REPORT INFORMATION
  Report Type: Spontaneous
  Country: US (occurrence: None)
  Receive Date: 20121112
  Receipt Date: 20121112
  Transmission Date: 20130627
  Serious: Yes (Other)
  Sender: FDA-Public Use
  Company Number: None

PATIENT
  Age: 40 Year
  Sex: Male
  Weight: 72.12 kg

DRUGS (2)
  1. HUMIRA [Suspect]
     Indication: SPONDYLOARTHROPATHY
     Dosage: 10 mg every 2 weeks sq
     Dates: start: 20100401, end: 20120801
  2. HUMIRA [Suspect]
     Indication: CROHN^S DISEASE
     Dosage: 10 mg every 2 weeks sq
     Dates: start: 20100401, end: 20120801

REACTIONS (2)
  - Non-Hodgkin^s lymphoma [None]
  - B-cell lymphoma [None]
